FAERS Safety Report 5256169-2 (Version None)
Quarter: 2007Q1

REPORT INFORMATION
  Report Type: 
  Country: None (occurrence: None)
  Receive Date: 20070302
  Receipt Date: 20070302
  Transmission Date: 20070707
  Serious: Yes (Life-Threatening)
  Sender: FDA-Public Use
  Company Number: None

PATIENT
  Sex: Female

DRUGS (1)
  1. CARBOPLATIN [Suspect]
     Indication: OVARIAN CANCER RECURRENT
     Dosage: IV
     Route: 042
     Dates: start: 20060721, end: 20060721

REACTIONS (6)
  - CHEST DISCOMFORT [None]
  - CREPITATIONS [None]
  - FEELING HOT [None]
  - INFUSION RELATED REACTION [None]
  - NAUSEA [None]
  - WHEEZING [None]
